FAERS Safety Report 9782693 (Version 1)
Quarter: 2013Q4

REPORT INFORMATION
  Report Type: Spontaneous
  Country: US (occurrence: US)
  Receive Date: 20131226
  Receipt Date: 20131226
  Transmission Date: 20140711
  Serious: No
  Sender: FDA-Public Use
  Company Number: US-009507513-1312USA003236

PATIENT
  Sex: Male

DRUGS (4)
  1. DULERA [Suspect]
     Indication: ASTHMA
     Dosage: 2  INHALATIONS, BID
     Route: 055
     Dates: start: 201304
  2. CORTICOSTEROIDS (UNSPECIFIED) [Concomitant]
  3. DOXYCYCLINE [Concomitant]
  4. TINIDAZOLE [Concomitant]

REACTIONS (3)
  - Dyspnoea [Recovered/Resolved]
  - Product quality issue [Unknown]
  - Underdose [Unknown]
